FAERS Safety Report 5663287-3 (Version None)
Quarter: 2008Q1

REPORT INFORMATION
  Report Type: 
  Country: None (occurrence: None)
  Receive Date: 20080310
  Receipt Date: 20080226
  Transmission Date: 20080703
  Serious: Yes (Hospitalization)
  Sender: FDA-Public Use
  Company Number: POMP-1000078

PATIENT
  Age: 8 Month
  Sex: Male

DRUGS (3)
  1. MYOZYME [Suspect]
     Indication: GLYCOGEN STORAGE DISEASE TYPE II
     Dosage: 20 MG/KG, Q2W
     Dates: start: 20080128
  2. CAPTOPRIL [Concomitant]
  3. FUROSEMIDE [Concomitant]

REACTIONS (4)
  - CIRCULATORY COLLAPSE [None]
  - CONVULSION [None]
  - CYANOSIS [None]
  - DIARRHOEA [None]
